FAERS Safety Report 25022380 (Version 1)
Quarter: 2025Q1

REPORT INFORMATION
  Report Type: Spontaneous
  Country: US (occurrence: US)
  Receive Date: 20250228
  Receipt Date: 20250228
  Transmission Date: 20250408
  Serious: Yes (Other)
  Sender: HIKMA
  Company Number: US-HIKMA PHARMACEUTICALS USA INC.-US-H14001-25-01862

PATIENT
  Sex: Female

DRUGS (1)
  1. FUROSEMIDE [Suspect]
     Active Substance: FUROSEMIDE
     Indication: Product used for unknown indication
     Route: 042

REACTIONS (10)
  - Near death experience [Unknown]
  - Peripheral swelling [Unknown]
  - Restlessness [Unknown]
  - Bladder spasm [Unknown]
  - Muscle spasms [Unknown]
  - Asthenia [Unknown]
  - Pyrexia [Unknown]
  - Dehydration [Unknown]
  - Vision blurred [Unknown]
  - Off label use [None]
